FAERS Safety Report 7613535-5 (Version None)
Quarter: 2011Q3

REPORT INFORMATION
  Report Type: 
  Country: None (occurrence: None)
  Receive Date: 20110708
  Receipt Date: 20110628
  Transmission Date: 20111222
  Serious: Yes (Hospitalization, Other)
  Sender: FDA-Public Use
  Company Number: 2011SP007671

PATIENT
  Age: 29 Year
  Sex: Female
  Weight: 74.8435 kg

DRUGS (2)
  1. VALTREX [Concomitant]
  2. NUVARING [Suspect]
     Indication: CONTRACEPTION
     Dates: start: 20071101, end: 20090201

REACTIONS (12)
  - HERPES SIMPLEX [None]
  - SINUS BRADYCARDIA [None]
  - CHEST PAIN [None]
  - DEEP VEIN THROMBOSIS [None]
  - COSTOCHONDRITIS [None]
  - GAIT DISTURBANCE [None]
  - THROMBOPHLEBITIS [None]
  - DEHYDRATION [None]
  - MOUTH ULCERATION [None]
  - HAEMORRHAGIC OVARIAN CYST [None]
  - HYPOKALAEMIA [None]
  - UPPER RESPIRATORY TRACT INFECTION [None]
